FAERS Safety Report 13153518 (Version 1)
Quarter: 2017Q1

REPORT INFORMATION
  Report Type: Report from Study
  Country: PK (occurrence: PK)
  Receive Date: 20170126
  Receipt Date: 20170126
  Transmission Date: 20170428
  Serious: Yes (Death, Hospitalization)
  Sender: FDA-Public Use
  Company Number: PHHY2017PK011495

PATIENT
  Age: 61 Year
  Sex: Male
  Weight: 58 kg

DRUGS (1)
  1. AFINITOR [Suspect]
     Active Substance: EVEROLIMUS
     Indication: RENAL CELL CARCINOMA
     Dosage: 10 MG, QD
     Route: 048
     Dates: start: 20161017, end: 20170113

REACTIONS (5)
  - Dyspnoea [Unknown]
  - Respiratory distress [Unknown]
  - Cough [Unknown]
  - Malignant neoplasm progression [Fatal]
  - Loss of consciousness [Unknown]

NARRATIVE: CASE EVENT DATE: 20170118
